FAERS Safety Report 8240455-8 (Version None)
Quarter: 2012Q1

REPORT INFORMATION
  Report Type: 
  Country: None (occurrence: None)
  Receive Date: 20120328
  Receipt Date: 20120319
  Transmission Date: 20120608
  Serious: Yes (Other)
  Sender: FDA-Public Use
  Company Number: US-NOVOPROD-347740

PATIENT
  Sex: Male

DRUGS (1)
  1. NOVOLOG [Suspect]
     Indication: DIABETES MELLITUS
     Route: 058

REACTIONS (2)
  - LOSS OF CONSCIOUSNESS [None]
  - DIZZINESS [None]
